FAERS Safety Report 16332461 (Version 1)
Quarter: 2019Q2

REPORT INFORMATION
  Report Type: Spontaneous
  Country: US (occurrence: US)
  Receive Date: 20190520
  Receipt Date: 20190520
  Transmission Date: 20190711
  Serious: No
  Sender: FDA-Public Use
  Company Number: US-PFIZER INC-2019206947

PATIENT
  Age: 70 Year
  Sex: Female

DRUGS (1)
  1. SOLU-CORTEF [Suspect]
     Active Substance: HYDROCORTISONE SODIUM SUCCINATE
     Dosage: UNK, AS NEEDED (50 TO 100 SUBQ EVERY 8 HOURS AS NEEDED.)
     Route: 058

REACTIONS (3)
  - Product dose omission [Unknown]
  - Pain [Unknown]
  - Product dispensing error [Unknown]
